FAERS Safety Report 11331691 (Version 1)
Quarter: 2015Q3

REPORT INFORMATION
  Report Type: Spontaneous
  Country: US (occurrence: US)
  Receive Date: 20150803
  Receipt Date: 20150803
  Transmission Date: 20151125
  Serious: Yes (Death, Other)
  Sender: FDA-Public Use
  Company Number: US-PFIZER INC-2015230779

PATIENT
  Age: 78 Year
  Sex: Female

DRUGS (1)
  1. PHENYTOIN SODIUM. [Suspect]
     Active Substance: PHENYTOIN SODIUM
     Indication: SEIZURE
     Dosage: 200 MG, EVERY 12 HOURS
     Route: 042

REACTIONS (8)
  - Acute kidney injury [Fatal]
  - Extravasation [Recovered/Resolved with Sequelae]
  - Cyanosis [Recovered/Resolved with Sequelae]
  - Angiopathy [Recovered/Resolved with Sequelae]
  - Pain in extremity [Recovered/Resolved with Sequelae]
  - Oedema peripheral [Unknown]
  - Peripheral coldness [Recovered/Resolved with Sequelae]
  - Erythema [Recovered/Resolved with Sequelae]
